FAERS Safety Report 6752407-5 (Version None)
Quarter: 2010Q2

REPORT INFORMATION
  Report Type: 
  Country: None (occurrence: None)
  Receive Date: 20100601
  Receipt Date: 20100601
  Transmission Date: 20101027
  Serious: Yes (Hospitalization)
  Sender: FDA-Public Use
  Company Number: None

PATIENT
  Age: 30 Year
  Sex: Male
  Weight: 74.8435 kg

DRUGS (1)
  1. BUDEPRION XL TEVA [Suspect]
     Indication: MAJOR DEPRESSION

REACTIONS (3)
  - CONDITION AGGRAVATED [None]
  - DEPRESSION [None]
  - PRODUCT SUBSTITUTION ISSUE [None]
